FAERS Safety Report 10171471 (Version 1)
Quarter: 2014Q2

REPORT INFORMATION
  Report Type: Spontaneous
  Country: US (occurrence: None)
  Receive Date: 20140513
  Receipt Date: 20140513
  Transmission Date: 20141212
  Serious: Yes (Life-Threatening)
  Sender: FDA-Public Use
  Company Number: None

PATIENT
  Age: 54 Year
  Sex: Male

DRUGS (7)
  1. AZITHROMYCIN [Suspect]
     Indication: PNEUMONIA
     Route: 042
     Dates: start: 20140101, end: 20140102
  2. CISATRACURIUM [Concomitant]
  3. DOBUTAMINE [Concomitant]
  4. EPINEPHRINE [Concomitant]
  5. FENTANYL [Concomitant]
  6. LORAZEPAM [Concomitant]
  7. VASOPRESSION [Concomitant]

REACTIONS (8)
  - Agitation [None]
  - Confusional state [None]
  - Infusion related reaction [None]
  - Hypotension [None]
  - Hypoxia [None]
  - Respiratory failure [None]
  - Pneumonia [None]
  - Pulmonary embolism [None]
